FAERS Safety Report 5372221-5 (Version None)
Quarter: 2007Q2

REPORT INFORMATION
  Report Type: 
  Country: None (occurrence: None)
  Receive Date: 20070627
  Receipt Date: 20070626
  Transmission Date: 20071010
  Serious: Yes (Other)
  Sender: FDA-Public Use
  Company Number: D0053639A

PATIENT
  Age: 29 Year
  Sex: Male

DRUGS (2)
  1. QUILONUM RETARD [Suspect]
     Indication: BIPOLAR II DISORDER
     Dosage: 450MG TWICE PER DAY
     Route: 048
     Dates: start: 20050201
  2. TRIMIPRAMINE MALEATE [Concomitant]
     Indication: FEAR
     Dosage: 25ML AS REQUIRED
     Route: 065

REACTIONS (2)
  - ALANINE AMINOTRANSFERASE INCREASED [None]
  - GAMMA-GLUTAMYLTRANSFERASE INCREASED [None]
